FAERS Safety Report 21148206 (Version 1)
Quarter: 2022Q3

REPORT INFORMATION
  Report Type: Report from Study
  Country: AU (occurrence: AU)
  Receive Date: 20220729
  Receipt Date: 20220729
  Transmission Date: 20221026
  Serious: Yes (Other)
  Sender: FDA-Public Use
  Company Number: AU-NOVARTISPH-NVSC2021AU151192

PATIENT
  Age: 56 Year
  Sex: Female

DRUGS (3)
  1. MAYZENT [Suspect]
     Active Substance: SIPONIMOD
     Indication: Secondary progressive multiple sclerosis
     Dosage: 2 MG, QD
     Route: 048
     Dates: start: 20210628
  2. MAYZENT [Suspect]
     Active Substance: SIPONIMOD
     Dosage: UNK (1 MG INSTEAD OF 1.25MG (DAY FIVE OF TITRATION)
     Route: 065
     Dates: start: 20211117
  3. MAYZENT [Suspect]
     Active Substance: SIPONIMOD
     Dosage: 2 MG, QD
     Route: 048
     Dates: start: 20220228

REACTIONS (13)
  - Systemic lupus erythematosus [Not Recovered/Not Resolved]
  - COVID-19 [Unknown]
  - Head discomfort [Unknown]
  - Feeling abnormal [Unknown]
  - Fluid intake reduced [Unknown]
  - Vision blurred [Unknown]
  - Limb discomfort [Unknown]
  - Muscle tightness [Unknown]
  - Dry eye [Unknown]
  - Colitis [Not Recovered/Not Resolved]
  - Fatigue [Unknown]
  - Headache [Unknown]
  - Drug titration error [Unknown]

NARRATIVE: CASE EVENT DATE: 20210702
